FAERS Safety Report 9037094 (Version 1)
Quarter: 2013Q1

REPORT INFORMATION
  Report Type: Spontaneous
  Country: US (occurrence: US)
  Receive Date: 20130129
  Receipt Date: 20130129
  Transmission Date: 20140127
  Serious: No
  Sender: FDA-Public Use
  Company Number: US-009507513-1301USA011096

PATIENT
  Age: 77 Year
  Sex: Female

DRUGS (1)
  1. ASMANEX TWISTHALER [Suspect]
     Indication: ASTHMA
     Dosage: 1 PUFF/TWICE DAILY

REACTIONS (3)
  - Palpitations [Unknown]
  - Heart rate increased [Unknown]
  - Product quality issue [Unknown]
